FAERS Safety Report 15823020 (Version 8)
Quarter: 2025Q1

REPORT INFORMATION
  Report Type: Spontaneous
  Country: US (occurrence: US)
  Receive Date: 20190114
  Receipt Date: 20250210
  Transmission Date: 20250408
  Serious: Yes (Hospitalization)
  Sender: PFIZER
  Company Number: US-PFIZER INC-2017395150

PATIENT
  Age: 73 Year
  Sex: Female

DRUGS (2)
  1. XELJANZ [Suspect]
     Active Substance: TOFACITINIB CITRATE
     Indication: Rheumatoid arthritis
     Route: 048
  2. XELJANZ [Suspect]
     Active Substance: TOFACITINIB CITRATE
     Dates: start: 20220203

REACTIONS (6)
  - Knee arthroplasty [Unknown]
  - Memory impairment [Unknown]
  - Sensitivity to weather change [Unknown]
  - Pain [Unknown]
  - Arthralgia [Unknown]
  - Off label use [Unknown]
